FAERS Safety Report 5377017-6 (Version None)
Quarter: 2007Q2

REPORT INFORMATION
  Report Type: 
  Country: None (occurrence: None)
  Receive Date: 20070628
  Receipt Date: 20070628
  Transmission Date: 20071010
  Serious: Yes (Hospitalization)
  Sender: FDA-Public Use
  Company Number: None

PATIENT
  Age: 83 Year
  Sex: Male

DRUGS (1)
  1. DOXAZOSIN MESYLATE [Suspect]
     Dosage: 8MG EVERY DAY PO
     Route: 048
     Dates: start: 20070413, end: 20070423

REACTIONS (3)
  - DIZZINESS POSTURAL [None]
  - ORTHOSTATIC HYPOTENSION [None]
  - VOMITING [None]
